FAERS Safety Report 17191195 (Version 1)
Quarter: 2019Q4

REPORT INFORMATION
  Report Type: Spontaneous
  Country: US (occurrence: US)
  Receive Date: 20191220
  Receipt Date: 20191220
  Transmission Date: 20200122
  Serious: Yes (Disabling, Other)
  Sender: FDA-Public Use
  Company Number: None

PATIENT
  Age: 59 Year
  Sex: Female
  Weight: 58.5 kg

DRUGS (11)
  1. C [Concomitant]
  2. PANTETHINE [Concomitant]
     Active Substance: PANTETHINE
  3. VITAMIN D3 [Concomitant]
     Active Substance: CHOLECALCIFEROL
  4. GABAPENTIN. [Suspect]
     Active Substance: GABAPENTIN
     Indication: NERVE INJURY
     Dosage: ?          QUANTITY:1 TABLET(S);?
     Route: 048
     Dates: start: 20090818, end: 20190829
  5. CLEAR LUNG [Concomitant]
  6. OMEGA-3MEGA B150 [Concomitant]
  7. BIOTIN [Concomitant]
     Active Substance: BIOTIN
  8. ASTRAGALUS [Concomitant]
  9. GABE-AMINOBUTYRIC ACID [Concomitant]
  10. CALCIUM [Concomitant]
     Active Substance: CALCIUM
  11. TUMERICA [Concomitant]

REACTIONS (1)
  - Withdrawal syndrome [None]

NARRATIVE: CASE EVENT DATE: 20191218
